FAERS Safety Report 15007110 (Version 1)
Quarter: 2018Q2

REPORT INFORMATION
  Report Type: Spontaneous
  Country: US (occurrence: US)
  Receive Date: 20180526
  Receipt Date: 20180526
  Transmission Date: 20180711
  Serious: Yes (Life-Threatening)
  Sender: FDA-Public Use
  Company Number: None

PATIENT
  Age: 69 Year
  Sex: Male
  Weight: 76.5 kg

DRUGS (12)
  1. MELATONIN [Concomitant]
     Active Substance: MELATONIN
  2. DEVA MULTIVITAMIN WITH IRON [Concomitant]
  3. VITAMIN D3 [Concomitant]
     Active Substance: CHOLECALCIFEROL
  4. LOPRESSOR [Suspect]
     Active Substance: METOPROLOL TARTRATE
     Indication: CARDIAC OPERATION
     Dosage: ?          QUANTITY:60 TABLET(S);?
     Route: 048
     Dates: start: 20180511, end: 20180519
  5. ATENOLOL. [Concomitant]
     Active Substance: ATENOLOL
  6. COQ10 [Concomitant]
     Active Substance: UBIDECARENONE
  7. BENADRYL [Concomitant]
     Active Substance: DIPHENHYDRAMINE HYDROCHLORIDE
  8. LOPRESSOR [Suspect]
     Active Substance: METOPROLOL TARTRATE
     Indication: AORTIC VALVE REPAIR
     Dosage: ?          QUANTITY:60 TABLET(S);?
     Route: 048
     Dates: start: 20180511, end: 20180519
  9. MAGNESIUM [Concomitant]
     Active Substance: MAGNESIUM
  10. ADVANCED SUPER K VITAMIN COMPLEX [Concomitant]
  11. PLAVIX [Concomitant]
     Active Substance: CLOPIDOGREL BISULFATE
  12. 325 ASPIRIN [Concomitant]

REACTIONS (3)
  - Insomnia [None]
  - Dyspnoea [None]
  - Heart rate increased [None]

NARRATIVE: CASE EVENT DATE: 20180511
